FAERS Safety Report 5466902-2 (Version None)
Quarter: 2007Q3

REPORT INFORMATION
  Report Type: 
  Country: None (occurrence: None)
  Receive Date: 20070920
  Receipt Date: 20070905
  Transmission Date: 20080115
  Serious: Yes (Disabling)
  Sender: FDA-Public Use
  Company Number: 2007JP004182

PATIENT
  Age: 40 Year
  Sex: Male
  Weight: 44.6 kg

DRUGS (2)
  1. PROGRAF [Suspect]
     Indication: DERMATOMYOSITIS
     Dosage: 1 MG, BID, ORAL
     Route: 048
     Dates: start: 20070611
  2. NEORAL [Suspect]
     Indication: DERMATOMYOSITIS
     Dosage: 50 MG, BID, ORAL
     Route: 048
     Dates: start: 20070518, end: 20070610

REACTIONS (2)
  - PERIPHERAL CIRCULATORY FAILURE [None]
  - PERIPHERAL EMBOLISM [None]
